FAERS Safety Report 22127616 (Version 1)
Quarter: 2023Q1

REPORT INFORMATION
  Report Type: Report from Study
  Country: US (occurrence: US)
  Receive Date: 20230323
  Receipt Date: 20230323
  Transmission Date: 20230417
  Serious: Yes (Other)
  Sender: FDA-Public Use
  Company Number: US-TAKEDA-2023TUS029680

PATIENT
  Age: 25 Year
  Sex: Female

DRUGS (1)
  1. HUMAN IMMUNOGLOBULIN G\HYALURONIDASE RECOMBINANT HUMAN [Suspect]
     Active Substance: HUMAN IMMUNOGLOBULIN G\HYALURONIDASE RECOMBINANT HUMAN
     Indication: Hypogammaglobulinaemia
     Dosage: 10 GRAM
     Route: 058
     Dates: start: 20230317, end: 20230317

REACTIONS (8)
  - Congenital uterine anomaly [Recovered/Resolved]
  - Renal fusion anomaly [Recovered/Resolved]
  - Hepatic enzyme decreased [Recovered/Resolved]
  - Hepatic enzyme increased [Recovered/Resolved]
  - Musculoskeletal chest pain [Recovered/Resolved]
  - Infusion site erythema [Recovered/Resolved]
  - Headache [Recovered/Resolved]
  - Infusion site extravasation [Recovered/Resolved]

NARRATIVE: CASE EVENT DATE: 20230317
